FAERS Safety Report 7011848-1 (Version None)
Quarter: 2010Q3

REPORT INFORMATION
  Report Type: 
  Country: None (occurrence: None)
  Receive Date: 20100924
  Receipt Date: 20100914
  Transmission Date: 20110219
  Serious: Yes (Other)
  Sender: FDA-Public Use
  Company Number: CH-ASTRAZENECA-2010SE43383

PATIENT
  Age: 81 Year
  Sex: Male

DRUGS (2)
  1. ZESTRIL [Suspect]
     Route: 048
     Dates: start: 20100609, end: 20100611
  2. TORASEM [Suspect]
     Route: 048
     Dates: start: 20100609, end: 20100611

REACTIONS (1)
  - RENAL FAILURE CHRONIC [None]
